FAERS Safety Report 23743132 (Version 2)
Quarter: 2024Q2

REPORT INFORMATION
  Report Type: Other
  Country: KR (occurrence: US)
  Receive Date: 20240415
  Receipt Date: 20240424
  Transmission Date: 20240716
  Serious: Yes (Hospitalization)
  Sender: FDA-Public Use
  Company Number: KR-ALVOGEN-2024094305

PATIENT
  Age: 46 Year
  Sex: Female

DRUGS (2)
  1. DEXAMETHASONE [Suspect]
     Active Substance: DEXAMETHASONE
     Indication: Blood cortisol
     Dosage: 1 MG DEXAMETHASONE, THE PREVIOUS NIGHT OF CORTISOL DETERMINATION
  2. DEXAMETHASONE [Suspect]
     Active Substance: DEXAMETHASONE
     Indication: Blood cortisol
     Dosage: HIGH-DOSE?2 MG, EVERY 6 HOURS FOR 2 DAYS
     Route: 048

REACTIONS (1)
  - Hyperammonaemic encephalopathy [Recovering/Resolving]
